FAERS Safety Report 12452660 (Version 2)
Quarter: 2016Q4

REPORT INFORMATION
  Report Type: Spontaneous
  Country: US (occurrence: US)
  Receive Date: 20160609
  Receipt Date: 20161115
  Transmission Date: 20170207
  Serious: No
  Sender: FDA-Public Use
  Company Number: US-GLAXOSMITHKLINE-US2016075219

PATIENT
  Age: 42 Year
  Sex: Female

DRUGS (2)
  1. VENTOLIN HFA [Suspect]
     Active Substance: ALBUTEROL SULFATE
     Indication: RESPIRATORY TRACT INFECTION
     Dosage: UNK
  2. VENTOLIN HFA [Suspect]
     Active Substance: ALBUTEROL SULFATE
     Indication: PNEUMONIA
     Dosage: 2 PUFF(S), BID
     Route: 055
     Dates: start: 20160518

REACTIONS (1)
  - Device use error [Recovered/Resolved]

NARRATIVE: CASE EVENT DATE: 20160518
